FAERS Safety Report 12484494 (Version 1)
Quarter: 2016Q2

REPORT INFORMATION
  Report Type: Spontaneous
  Country: GB (occurrence: GB)
  Receive Date: 20160621
  Receipt Date: 20160621
  Transmission Date: 20160815
  Serious: Yes (Other)
  Sender: FDA-Public Use
  Company Number: GB-TEVA-667399ACC

PATIENT
  Age: 72 Year
  Sex: Male
  Weight: 96 kg

DRUGS (13)
  1. CO-AMOXICLAV [Concomitant]
     Active Substance: AMOXICILLIN\CLAVULANIC ACID
     Dosage: 3 DOSAGE FORMS DAILY;
     Dates: start: 20160527
  2. AMOXICILLIN. [Concomitant]
     Active Substance: AMOXICILLIN
     Dosage: 3 DOSAGE FORMS DAILY;
     Dates: start: 20160331, end: 20160407
  3. IBUPROFEN. [Concomitant]
     Active Substance: IBUPROFEN
     Dosage: 3 TIMES/DAY
     Dates: start: 20160331, end: 20160408
  4. HYDROXOCOBALAMIN [Concomitant]
     Active Substance: HYDROXOCOBALAMIN
     Dosage: USE AS DIRECTED
     Dates: start: 20160406
  5. SILDENAFIL. [Concomitant]
     Active Substance: SILDENAFIL
     Dosage: AS DIRECTED
     Dates: start: 20160120
  6. HYDROCORTISONE. [Concomitant]
     Active Substance: HYDROCORTISONE
     Dosage: 2 DOSAGE FORMS DAILY; APPLY SPARINGLY
     Dates: start: 20160331, end: 20160428
  7. LANSOPRAZOLE. [Concomitant]
     Active Substance: LANSOPRAZOLE
     Dosage: 1 DOSAGE FORMS DAILY;
     Dates: start: 20160120
  8. TAMSULOSIN HYDROCHLORIDE. [Concomitant]
     Active Substance: TAMSULOSIN HYDROCHLORIDE
     Dates: start: 20160120
  9. ERGOCALCIFEROL. [Concomitant]
     Active Substance: ERGOCALCIFEROL
     Dosage: USE AS DIRECTED
     Dates: start: 20160406, end: 20160407
  10. FUROSEMIDE. [Concomitant]
     Active Substance: FUROSEMIDE
     Dosage: 1 DOSAGE FORMS DAILY; EACH MORNING
     Dates: start: 20151230
  11. METFORMIN [Concomitant]
     Active Substance: METFORMIN HYDROCHLORIDE
     Dosage: 2 DOSAGE FORMS DAILY;
     Dates: start: 20160120
  12. METRONIDAZOLE. [Suspect]
     Active Substance: METRONIDAZOLE
     Indication: PENILE ULCERATION
     Route: 048
     Dates: start: 20160527
  13. SITAGLIPTIN [Concomitant]
     Active Substance: SITAGLIPTIN
     Dosage: 1 DOSAGE FORMS DAILY;
     Dates: start: 20151105

REACTIONS (1)
  - Ulcer [Recovered/Resolved]

NARRATIVE: CASE EVENT DATE: 20160527
